FAERS Safety Report 18394701 (Version 1)
Quarter: 2020Q4

REPORT INFORMATION
  Report Type: Spontaneous
  Country: US (occurrence: US)
  Receive Date: 20201017
  Receipt Date: 20201017
  Transmission Date: 20210114
  Serious: Yes (Hospitalization)
  Sender: FDA-Public Use
  Company Number: NVSC2020US279241

PATIENT
  Age: 64 Year
  Sex: Male

DRUGS (1)
  1. PROMACTA [Suspect]
     Active Substance: ELTROMBOPAG OLAMINE
     Indication: THROMBOCYTOPENIC PURPURA
     Dosage: 25 MG, QD
     Route: 048
     Dates: start: 20200914, end: 20201005

REACTIONS (3)
  - Nausea [Unknown]
  - Dizziness [Unknown]
  - Haematemesis [Unknown]

NARRATIVE: CASE EVENT DATE: 20201005
